FAERS Safety Report 19085819 (Version 1)
Quarter: 2021Q2

REPORT INFORMATION
  Report Type: Report from Study
  Country: FR (occurrence: FR)
  Receive Date: 20210402
  Receipt Date: 20210402
  Transmission Date: 20210717
  Serious: Yes (Hospitalization)
  Sender: FDA-Public Use
  Company Number: FR-BAUSCH-BL-2021-011343

PATIENT
  Age: 71 Year
  Sex: Male
  Weight: 63 kg

DRUGS (5)
  1. NERISONE [Concomitant]
     Active Substance: DIFLUCORTOLONE VALERATE
     Indication: PRODUCT USED FOR UNKNOWN INDICATION
     Dates: start: 20191107
  2. DEXERYL [Concomitant]
     Indication: PRODUCT USED FOR UNKNOWN INDICATION
     Dates: start: 20200430
  3. LOCAPRED [Concomitant]
     Active Substance: DESONIDE
     Indication: PRODUCT USED FOR UNKNOWN INDICATION
     Dates: start: 20191107
  4. KYNTHEUM (210 MILLIGRAM, SOLUTION FOR INJECTION) (BRODALUMAB) [Suspect]
     Active Substance: BRODALUMAB
     Indication: PSORIASIS
     Dosage: ONE INJECTION EVERY WEEK AND THEN ONE INJECTION EVERY 2 WEEKS
     Route: 058
     Dates: start: 20191107, end: 202011
  5. KYNTHEUM (210 MILLIGRAM, SOLUTION FOR INJECTION) (BRODALUMAB) [Suspect]
     Active Substance: BRODALUMAB
     Route: 058
     Dates: start: 20201126

REACTIONS (1)
  - Sepsis [Recovered/Resolved]

NARRATIVE: CASE EVENT DATE: 202011
